FAERS Safety Report 24669779 (Version 1)
Quarter: 2024Q4

REPORT INFORMATION
  Report Type: Spontaneous
  Country: US (occurrence: US)
  Receive Date: 20241127
  Receipt Date: 20241127
  Transmission Date: 20250115
  Serious: Yes (Life-Threatening, Other)
  Sender: DR REDDYS
  Company Number: US-BLG-LIT/USA/24/0017441

PATIENT
  Age: 6 Decade
  Sex: Male

DRUGS (10)
  1. LENALIDOMIDE [Suspect]
     Active Substance: LENALIDOMIDE
     Indication: Rosai-Dorfman syndrome
     Dosage: FOR 3 WEEKS
  2. SIROLIMUS [Suspect]
     Active Substance: SIROLIMUS
     Indication: Rosai-Dorfman syndrome
  3. SIROLIMUS [Suspect]
     Active Substance: SIROLIMUS
     Route: 048
  4. DEXAMETHASONE [Suspect]
     Active Substance: DEXAMETHASONE
     Indication: Rosai-Dorfman syndrome
     Dosage: MONDAY TO FRIDAY WEEKLY
  5. RITUXIMAB [Suspect]
     Active Substance: RITUXIMAB
     Indication: Rosai-Dorfman syndrome
     Dosage: 500 MG/M2 PER DOSE WEEKLY FOR 4 WEEKS, THEN EVERY 2 MONTHS AND SUBSEQUENTLY EVERY 3 MONTHS.
     Route: 048
  6. PREDNISONE [Suspect]
     Active Substance: PREDNISONE
     Indication: Rosai-Dorfman syndrome
     Route: 048
  7. PREDNISONE [Suspect]
     Active Substance: PREDNISONE
     Route: 048
  8. PREDNISONE [Suspect]
     Active Substance: PREDNISONE
     Route: 048
  9. FILGRASTIM [Concomitant]
     Active Substance: FILGRASTIM
     Indication: Neutropenia
     Route: 048
  10. SULFAMETHOXAZOLE\TRIMETHOPRIM [Concomitant]
     Active Substance: SULFAMETHOXAZOLE\TRIMETHOPRIM
     Indication: Neutropenia
     Route: 048

REACTIONS (7)
  - Neutropenia [Recovered/Resolved]
  - Histoplasmosis disseminated [Unknown]
  - Cytopenia [Recovered/Resolved]
  - Disease progression [Unknown]
  - Dyspnoea [Unknown]
  - Cough [Unknown]
  - Product use in unapproved indication [Unknown]
